FAERS Safety Report 23424659 (Version 1)
Quarter: 2024Q1

REPORT INFORMATION
  Report Type: Spontaneous
  Country: JP (occurrence: JP)
  Receive Date: 20240120
  Receipt Date: 20240120
  Transmission Date: 20240410
  Serious: Yes (Life-Threatening, Hospitalization, Other)
  Sender: FDA-Public Use
  Company Number: JP-Accord-401400

PATIENT
  Age: 56 Year
  Sex: Male

DRUGS (5)
  1. MYCOPHENOLATE MOFETIL [Suspect]
     Active Substance: MYCOPHENOLATE MOFETIL
     Indication: Immunosuppressant drug therapy
  2. TACROLIMUS [Suspect]
     Active Substance: TACROLIMUS
     Indication: Immunosuppressant drug therapy
  3. PREDNISOLONE [Suspect]
     Active Substance: PREDNISOLONE
     Indication: Immunosuppressant drug therapy
  4. REMDESIVIR [Concomitant]
     Active Substance: REMDESIVIR
     Indication: COVID-19
  5. DEXAMETHASONE [Concomitant]
     Active Substance: DEXAMETHASONE
     Indication: COVID-19

REACTIONS (4)
  - SARS-CoV-2 RNA increased [Recovered/Resolved]
  - Renal impairment [Recovering/Resolving]
  - COVID-19 pneumonia [Recovered/Resolved]
  - Pulmonary oedema [Recovered/Resolved]
